FAERS Safety Report 6347990-8 (Version None)
Quarter: 2009Q3

REPORT INFORMATION
  Report Type: 
  Country: None (occurrence: None)
  Receive Date: 20090910
  Receipt Date: 20090902
  Transmission Date: 20100115
  Serious: Yes (Hospitalization)
  Sender: FDA-Public Use
  Company Number: US-GILEAD-2009-0022561

PATIENT
  Sex: Female

DRUGS (17)
  1. LETAIRIS [Suspect]
     Indication: PULMONARY HYPERTENSION
     Route: 048
     Dates: start: 20080802
  2. LASIX [Concomitant]
  3. SPIRONOLACTONE [Concomitant]
  4. DIGOXIN [Concomitant]
  5. CEFTRIAXONE [Concomitant]
  6. CYCLOBENZAPRINE [Concomitant]
  7. COLACE [Concomitant]
  8. GABAPENTIN [Concomitant]
  9. LETROZOLE [Concomitant]
  10. LEVETIRACETAM [Concomitant]
  11. LEVOTHYROXINE SODIUM [Concomitant]
  12. MEGACE [Concomitant]
  13. AVELOX [Concomitant]
  14. PRILOSEC [Concomitant]
  15. POTASSIUM CHLORIDE [Concomitant]
  16. SERTRALINE HCL [Concomitant]
  17. SIMVASTATIN [Concomitant]

REACTIONS (1)
  - NOCARDIOSIS [None]
